FAERS Safety Report 5126874-7 (Version None)
Quarter: 2006Q4

REPORT INFORMATION
  Report Type: 
  Country: None (occurrence: None)
  Receive Date: 20061011
  Receipt Date: 20061011
  Transmission Date: 20070319
  Serious: Yes (Other)
  Sender: FDA-Public Use
  Company Number: None

PATIENT
  Age: 65 Year
  Sex: Female
  Weight: 68 kg

DRUGS (2)
  1. PROMETHAZINE [Suspect]
     Indication: NAUSEA
     Dosage: 12.5 MG   DAILY  PO
     Route: 048
     Dates: start: 20060928, end: 20061003
  2. PROMETHAZINE [Suspect]
     Indication: VOMITING
     Dosage: 12.5 MG   DAILY  PO
     Route: 048
     Dates: start: 20060928, end: 20061003

REACTIONS (4)
  - ANXIETY [None]
  - DEHYDRATION [None]
  - SWOLLEN TONGUE [None]
  - VOMITING [None]
